FAERS Safety Report 6989312-5 (Version None)
Quarter: 2010Q3

REPORT INFORMATION
  Report Type: 
  Country: None (occurrence: None)
  Receive Date: 20100916
  Receipt Date: 20091109
  Transmission Date: 20110219
  Serious: Yes (Other)
  Sender: FDA-Public Use
  Company Number: DE-PFIZER INC-2009284059

PATIENT
  Sex: Female
  Weight: 60 kg

DRUGS (4)
  1. LYRICA [Suspect]
     Indication: RADICULAR SYNDROME
     Dosage: 75 MG, 1X/DAY
     Route: 048
     Dates: start: 20090120, end: 20090228
  2. LYRICA [Suspect]
     Indication: NEURALGIA
  3. TRAMADOL HCL [Concomitant]
     Dosage: UNK
  4. IBUPROFEN [Concomitant]
     Dosage: UNK

REACTIONS (3)
  - MACULAR OEDEMA [None]
  - RETINAL VEIN THROMBOSIS [None]
  - VISUAL ACUITY REDUCED [None]
